FAERS Safety Report 11575267 (Version 1)
Quarter: 2015Q3

REPORT INFORMATION
  Report Type: Spontaneous
  Country: US (occurrence: US)
  Receive Date: 20150930
  Receipt Date: 20150930
  Transmission Date: 20151125
  Serious: No
  Sender: FDA-Public Use
  Company Number: US-BAYER-2015-433728

PATIENT
  Age: 95 Year
  Sex: Female
  Weight: 78.46 kg

DRUGS (1)
  1. MIRALAX [Suspect]
     Active Substance: POLYETHYLENE GLYCOL 3350
     Indication: CONSTIPATION
     Dosage: 1 TEASPOON, ONCE
     Route: 048
     Dates: start: 20150928, end: 20150928

REACTIONS (1)
  - Product use issue [None]
